FAERS Safety Report 9824739 (Version 3)
Quarter: 2014Q1

REPORT INFORMATION
  Report Type: Report from Study
  Country: CA (occurrence: CA)
  Receive Date: 20140117
  Receipt Date: 20140202
  Transmission Date: 20141002
  Serious: Yes (Other)
  Sender: FDA-Public Use
  Company Number: CA-ROCHE-1241865

PATIENT
  Age: 47 Year
  Sex: Female

DRUGS (5)
  1. PERJETA [Suspect]
     Indication: BREAST CANCER METASTATIC
     Route: 042
     Dates: start: 20130606
  2. PERJETA [Suspect]
     Route: 042
     Dates: start: 20130626, end: 20131227
  3. HERCEPTIN [Suspect]
     Indication: BREAST CANCER METASTATIC
     Route: 042
     Dates: start: 201209, end: 20131227
  4. TAXOTERE [Suspect]
     Indication: BREAST CANCER METASTATIC
     Route: 065
     Dates: start: 20130606
  5. PACLITAXEL [Suspect]
     Indication: BREAST CANCER
     Route: 042
     Dates: start: 201209, end: 20131220

REACTIONS (3)
  - Neuralgia [Not Recovered/Not Resolved]
  - Diarrhoea [Unknown]
  - No therapeutic response [Unknown]
